FAERS Safety Report 7388018-0 (Version None)
Quarter: 2011Q1

REPORT INFORMATION
  Report Type: 
  Country: None (occurrence: None)
  Receive Date: 20110322
  Receipt Date: 20110310
  Transmission Date: 20110831
  Serious: Yes (Hospitalization)
  Sender: FDA-Public Use
  Company Number: 014041

PATIENT
  Sex: Male
  Weight: 66 kg

DRUGS (9)
  1. CERTOLIZUMAB PEGOL (CERTOLIZUMAB PEGOL) [Suspect]
     Indication: RHEUMATOID ARTHRITIS
     Dosage: 400 MG 1X/2 WEEKS, DOUBLE BLIND PHASE, NBR OF DOSES: 3 SUBCUTANEOUS
     Route: 058
     Dates: start: 20091119, end: 20091221
  2. ALENDRONATE SODIUM [Concomitant]
  3. BISOPROLOL [Concomitant]
  4. SIMVASTATIN [Concomitant]
  5. METEX [Concomitant]
  6. CYANOCOBALAMIN [Concomitant]
  7. PREDI  H [Concomitant]
  8. SULFASALAZINE [Concomitant]
  9. DICLOFENAC [Concomitant]

REACTIONS (15)
  - RED BLOOD CELL COUNT DECREASED [None]
  - BLOOD ALBUMIN DECREASED [None]
  - RESPIRATORY FAILURE [None]
  - LEFT ATRIAL DILATATION [None]
  - DIASTOLIC DYSFUNCTION [None]
  - PNEUMONIA [None]
  - HAEMOGLOBIN DECREASED [None]
  - BRONCHOPULMONARY ASPERGILLOSIS [None]
  - MYCOBACTERIUM TUBERCULOSIS COMPLEX TEST POSITIVE [None]
  - C-REACTIVE PROTEIN INCREASED [None]
  - PYOTHORAX [None]
  - BLOOD LACTATE DEHYDROGENASE INCREASED [None]
  - NEISSERIA TEST POSITIVE [None]
  - OXYGEN SATURATION DECREASED [None]
  - LUNG INFILTRATION [None]
